FAERS Safety Report 20213992 (Version 1)
Quarter: 2021Q4

REPORT INFORMATION
  Report Type: Report from Study
  Country: US (occurrence: US)
  Receive Date: 20211221
  Receipt Date: 20211221
  Transmission Date: 20220303
  Serious: Yes (Hospitalization)
  Sender: FDA-Public Use
  Company Number: US-BRISTOL-MYERS SQUIBB COMPANY-BMS-2021-138220

PATIENT

DRUGS (1)
  1. APIXABAN [Suspect]
     Active Substance: APIXABAN
     Indication: Deep vein thrombosis
     Dosage: UNK
     Route: 065
     Dates: start: 202110

REACTIONS (1)
  - Chest pain [Unknown]

NARRATIVE: CASE EVENT DATE: 20211214
